FAERS Safety Report 11444942 (Version 3)
Quarter: 2017Q3

REPORT INFORMATION
  Report Type: Report from Study
  Country: BR (occurrence: BR)
  Receive Date: 20150902
  Receipt Date: 20170919
  Transmission Date: 20171127
  Serious: Yes (Other)
  Sender: FDA-Public Use
  Company Number: PHHY2015BR104696

PATIENT
  Sex: Female
  Weight: 53 kg

DRUGS (3)
  1. HUMIRA [Concomitant]
     Active Substance: ADALIMUMAB
     Indication: RHEUMATOID ARTHRITIS
     Dosage: EVERY 15 DAYS
     Route: 065
  2. ACLASTA [Suspect]
     Active Substance: ZOLEDRONIC ACID
     Indication: OSTEOPOROSIS
     Dosage: 1 DF (5MG/100ML), Q12MO
     Route: 042
     Dates: start: 20140826
  3. ACLASTA [Suspect]
     Active Substance: ZOLEDRONIC ACID
     Dosage: UNK
     Route: 042
     Dates: start: 201612

REACTIONS (10)
  - Spinal fracture [Recovered/Resolved]
  - Spinal fracture [Unknown]
  - Back pain [Recovered/Resolved]
  - Hypokinesia [Unknown]
  - Pneumonia [Recovering/Resolving]
  - Hypertension [Unknown]
  - Muscle atrophy [Unknown]
  - Thyroid disorder [Unknown]
  - Muscular weakness [Unknown]
  - Spinal deformity [Unknown]
